FAERS Safety Report 10277476 (Version 1)
Quarter: 2014Q3

REPORT INFORMATION
  Report Type: Spontaneous
  Country: US (occurrence: US)
  Receive Date: 20140703
  Receipt Date: 20140703
  Transmission Date: 20150326
  Serious: Yes (Congenital Anomaly, Other)
  Sender: FDA-Public Use
  Company Number: US-RECKITT BENCKISER PHARMACEUTICAL, INC-RB-68899-2014

PATIENT
  Age: 34 Year
  Sex: Female

DRUGS (4)
  1. BUPRENORPHINE GENERIC TAB [Suspect]
     Active Substance: BUPRENORPHINE
     Indication: DRUG DEPENDENCE
     Dosage: 4 MG DAILY
     Route: 064
     Dates: start: 201107, end: 20120320
  2. XANAX [Suspect]
     Active Substance: ALPRAZOLAM
     Indication: ANXIETY
     Dosage: 1 MG, QD
     Route: 064
     Dates: start: 201106, end: 20120320
  3. NICOTINE. [Suspect]
     Active Substance: NICOTINE
     Indication: NICOTINE DEPENDENCE
     Dosage: 10 CIGARETTES DAILY INHALATION BY MOTHER
     Route: 064
     Dates: start: 201106, end: 20120320
  4. SUBOXONE [Suspect]
     Active Substance: BUPRENORPHINE HYDROCHLORIDE\NALOXONE HYDROCHLORIDE
     Indication: DRUG DEPENDENCE
     Dosage: 24 MG DAILY
     Route: 064
     Dates: end: 201107

REACTIONS (4)
  - Foetal exposure during pregnancy [Recovered/Resolved]
  - Maternal drugs affecting foetus [None]
  - Caesarean section [None]
  - Amblyopia [Not Recovered/Not Resolved]

NARRATIVE: CASE EVENT DATE: 201106
